FAERS Safety Report 18193272 (Version 3)
Quarter: 2020Q3

REPORT INFORMATION
  Report Type: Spontaneous
  Country: DE (occurrence: CN)
  Receive Date: 20200825
  Receipt Date: 20200908
  Transmission Date: 20201103
  Serious: Yes (Other)
  Sender: FDA-Public Use
  Company Number: CN-ELI_LILLY_AND_COMPANY-CN202008008508

PATIENT

DRUGS (1)
  1. ERBITUX [Suspect]
     Active Substance: CETUXIMAB
     Indication: PRODUCT USED FOR UNKNOWN INDICATION
     Dosage: 800 MG, 2/M
     Route: 065

REACTIONS (4)
  - Off label use [Unknown]
  - Large intestinal ulcer [Unknown]
  - Immune-mediated enterocolitis [Unknown]
  - Gastrointestinal necrosis [Unknown]
